FAERS Safety Report 24902683 (Version 1)
Quarter: 2025Q1

REPORT INFORMATION
  Report Type: Spontaneous
  Country: US (occurrence: US)
  Receive Date: 20250130
  Receipt Date: 20250130
  Transmission Date: 20250408
  Serious: No
  Sender: NOVARTIS
  Company Number: US-002147023-NVSC2025US012218

PATIENT
  Sex: Male

DRUGS (1)
  1. PLUVICTO [Suspect]
     Active Substance: LUTETIUM LU-177 VIPIVOTIDE TETRAXETAN
     Indication: Neoplasm malignant
     Route: 065

REACTIONS (7)
  - Pain [Unknown]
  - Facial nerve disorder [Unknown]
  - Neuralgia [Unknown]
  - Facial pain [Unknown]
  - Prostatic specific antigen decreased [Unknown]
  - Glossodynia [Unknown]
  - Saliva altered [Unknown]
